FAERS Safety Report 13069162 (Version 1)
Quarter: 2016Q4

REPORT INFORMATION
  Report Type: Spontaneous
  Country: US (occurrence: US)
  Receive Date: 20161228
  Receipt Date: 20161228
  Transmission Date: 20170207
  Serious: No
  Sender: FDA-Public Use
  Company Number: US-PFIZER INC-2016590814

PATIENT
  Sex: Female

DRUGS (1)
  1. XELJANZ [Suspect]
     Active Substance: TOFACITINIB CITRATE
     Dosage: 5 MG, 1X/DAY

REACTIONS (8)
  - Back pain [Unknown]
  - Tinnitus [Unknown]
  - Psoriasis [Unknown]
  - Arthralgia [Unknown]
  - Dry skin [Unknown]
  - Hypertension [Unknown]
  - Pruritus [Unknown]
  - Dry mouth [Unknown]
